FAERS Safety Report 20223162 (Version 2)
Quarter: 2022Q1

REPORT INFORMATION
  Report Type: Spontaneous
  Country: GR (occurrence: GR)
  Receive Date: 20211223
  Receipt Date: 20220105
  Transmission Date: 20220423
  Serious: Yes (Death, Other)
  Sender: FDA-Public Use
  Company Number: GR-CELGENE-GRC-20211206399

PATIENT
  Age: 58 Year
  Sex: Male
  Weight: 61 kg

DRUGS (4)
  1. LUSPATERCEPT [Suspect]
     Active Substance: LUSPATERCEPT
     Indication: Anaemia
     Dosage: 1.25 MILLIGRAM/KILOGRAM
     Route: 058
     Dates: start: 20210809, end: 20211103
  2. DESFERAL [Concomitant]
     Active Substance: DEFEROXAMINE MESYLATE
     Indication: Iron overload
     Route: 065
  3. DEFERIPRONE [Concomitant]
     Active Substance: DEFERIPRONE
     Indication: Iron overload
     Route: 065
  4. XARELTO [Concomitant]
     Active Substance: RIVAROXABAN
     Indication: Atrial fibrillation
     Route: 065

REACTIONS (14)
  - Deep vein thrombosis [Fatal]
  - Cardio-respiratory arrest [Fatal]
  - Pulmonary embolism [Fatal]
  - Oedema peripheral [Fatal]
  - Dyspnoea [Fatal]
  - Asphyxia [Fatal]
  - Apnoea [Fatal]
  - Mydriasis [Fatal]
  - Tachypnoea [Fatal]
  - Loss of consciousness [Fatal]
  - Erythema [Fatal]
  - Chest pain [Fatal]
  - Body temperature increased [Fatal]
  - Pain in extremity [Unknown]

NARRATIVE: CASE EVENT DATE: 20211104
